FAERS Safety Report 23102958 (Version 1)
Quarter: 2023Q4

REPORT INFORMATION
  Report Type: Spontaneous
  Country: US (occurrence: None)
  Receive Date: 20231022
  Receipt Date: 20231022
  Transmission Date: 20240110
  Serious: Yes (Hospitalization)
  Sender: FDA-Public Use
  Company Number: None

PATIENT
  Age: 35 Year
  Sex: Male
  Weight: 76 kg

DRUGS (2)
  1. APIXABAN [Suspect]
     Active Substance: APIXABAN
     Dosage: FREQUENCY : TWICE A DAY;?
     Route: 048
     Dates: start: 20210323, end: 20221115
  2. KETOROLAC TROMETHAMINE [Suspect]
     Active Substance: KETOROLAC TROMETHAMINE
     Dosage: FREQUENCY : 4 TIMES A DAY;?
     Route: 042
     Dates: start: 20221108, end: 20221115

REACTIONS (3)
  - Anaemia [None]
  - Gastrointestinal haemorrhage [None]
  - Pulmonary resection [None]

NARRATIVE: CASE EVENT DATE: 20221115
